FAERS Safety Report 15424828 (Version 1)
Quarter: 2018Q3

REPORT INFORMATION
  Report Type: Spontaneous
  Country: US (occurrence: US)
  Receive Date: 20180925
  Receipt Date: 20180925
  Transmission Date: 20181010
  Serious: Yes (Hospitalization, Disabling)
  Sender: FDA-Public Use
  Company Number: US-JNJFOC-20180925970

PATIENT
  Age: 56 Year
  Sex: Male

DRUGS (1)
  1. INVOKANA [Suspect]
     Active Substance: CANAGLIFLOZIN
     Indication: PRODUCT USED FOR UNKNOWN INDICATION
     Route: 048

REACTIONS (6)
  - Diabetic foot infection [Unknown]
  - Impaired healing [Unknown]
  - Leg amputation [Unknown]
  - Gangrene [Unknown]
  - Osteomyelitis [Unknown]
  - Cellulitis [Unknown]

NARRATIVE: CASE EVENT DATE: 201609
